FAERS Safety Report 9366806 (Version 1)
Quarter: 2013Q2

REPORT INFORMATION
  Report Type: Spontaneous
  Country: IT (occurrence: IT)
  Receive Date: 20130625
  Receipt Date: 20130625
  Transmission Date: 20140414
  Serious: Yes (Hospitalization)
  Sender: FDA-Public Use
  Company Number: IT-PFIZER INC-2013188434

PATIENT
  Age: 70 Year
  Sex: Female

DRUGS (9)
  1. LYRICA [Suspect]
     Dosage: 75 MG, 1X/DAY
     Route: 048
  2. LYRICA [Suspect]
     Dosage: 150 MG, 1X/DAY
     Route: 048
     Dates: start: 20130601, end: 20130608
  3. ZECOVIR [Suspect]
     Indication: HERPES ZOSTER
     Dosage: 125 MG, 1X/DAY
     Route: 048
     Dates: start: 20130601, end: 20130608
  4. KOLIBRI [Suspect]
     Dosage: 37.5 MG, 1X/DAY
     Route: 048
     Dates: start: 20130601, end: 20130603
  5. METFORMIN HYDROCHLORIDE [Concomitant]
  6. AMLODIPINE BESILATE [Concomitant]
  7. HYDROCHLOROTHIAZIDE, TELMISARTAN [Concomitant]
  8. ATORVASTATIN CALCIUM TRIHYDRATE [Concomitant]
  9. CARDIOASPIRIN [Concomitant]

REACTIONS (6)
  - Pyrexia [Recovering/Resolving]
  - Rash [Recovering/Resolving]
  - Skin toxicity [Recovering/Resolving]
  - Leukocytosis [Recovering/Resolving]
  - Neutrophilia [Recovering/Resolving]
  - C-reactive protein increased [Recovering/Resolving]
